FAERS Safety Report 8216386-6 (Version None)
Quarter: 2012Q1

REPORT INFORMATION
  Report Type: 
  Country: None (occurrence: None)
  Receive Date: 20120316
  Receipt Date: 20120314
  Transmission Date: 20120608
  Serious: Yes (Death)
  Sender: FDA-Public Use
  Company Number: PHHY2012HN022993

PATIENT
  Age: 57 Year
  Sex: Female

DRUGS (2)
  1. DIOVAN [Suspect]
     Indication: HYPERTENSION
     Dosage: 320 MG, UNK
  2. NPH INSULIN [Concomitant]
     Dosage: 15 U IN THE MORNING AND 25 U IN THE EVENING
     Route: 058

REACTIONS (1)
  - OVARIAN CANCER [None]
